FAERS Safety Report 8876845 (Version 1)
Quarter: 2012Q4

REPORT INFORMATION
  Report Type: Spontaneous
  Country: US (occurrence: None)
  Receive Date: 20121024
  Receipt Date: 20121024
  Transmission Date: 20130627
  Serious: Yes (Hospitalization, Other)
  Sender: FDA-Public Use
  Company Number: ADR-2012-01921

PATIENT
  Age: 34 Year
  Sex: Male

DRUGS (2)
  1. LIORESAL INTRATHECAL (BACLOFEN INJECTION) [Suspect]
     Dosage: 37.95 mcg/day
  2. LIORESAL INTRATHECAL (BACLOFEN INJECTION) [Suspect]
     Dosage: 37.95 mcg/day

REACTIONS (4)
  - Device related infection [None]
  - Influenza like illness [None]
  - Erythema [None]
  - Pyrexia [None]
